FAERS Safety Report 15713825 (Version 2)
Quarter: 2024Q3

REPORT INFORMATION
  Report Type: Spontaneous
  Country: SE (occurrence: SE)
  Receive Date: 20181212
  Receipt Date: 20240920
  Transmission Date: 20241017
  Serious: Yes (Hospitalization)
  Sender: BAUSCH AND LOMB
  Company Number: SE-PFIZER INC-2018396974

PATIENT
  Age: 63 Year
  Sex: Male

DRUGS (8)
  1. METFORMIN HYDROCHLORIDE [Suspect]
     Active Substance: METFORMIN HYDROCHLORIDE
     Indication: Diabetes mellitus
     Route: 065
     Dates: start: 2016, end: 2018
  2. ASPIRIN [Suspect]
     Active Substance: ASPIRIN
     Indication: Thrombosis
     Dosage: 75 MG, 1X/DAY
     Route: 065
  3. ASPIRIN [Suspect]
     Active Substance: ASPIRIN
     Dosage: 75 MG, 1X/DAY
     Route: 065
     Dates: start: 20180606, end: 2018
  4. ATORVASTATIN CALCIUM [Suspect]
     Active Substance: ATORVASTATIN CALCIUM
     Indication: Thrombosis
     Dosage: 20 MG, UNK
     Route: 065
     Dates: end: 2018
  5. ASPIRIN [Suspect]
     Active Substance: ASPIRIN
     Indication: Product used for unknown indication
     Route: 065
  6. ASPIRIN [Suspect]
     Active Substance: ASPIRIN
     Indication: Product used for unknown indication
     Route: 065
  7. ORUDIS [Concomitant]
     Active Substance: KETOPROFEN
     Indication: Plantar fasciitis
     Dosage: 1 DF (TABLET), DAILY
     Route: 065
  8. HERBALS\TURMERIC [Concomitant]
     Active Substance: HERBALS\TURMERIC
     Indication: Product used for unknown indication
     Dosage: 1/2 TEASPOON, 2X/DAY; DURING DAY AND IN EVENING
     Route: 065

REACTIONS (13)
  - Impaired healing [Not Recovered/Not Resolved]
  - Swelling [Not Recovered/Not Resolved]
  - Back pain [Not Recovered/Not Resolved]
  - Pain in extremity [Not Recovered/Not Resolved]
  - Eye disorder [Recovered/Resolved]
  - Inflammation [Not Recovered/Not Resolved]
  - Vision blurred [Recovered/Resolved]
  - Neuralgia [Not Recovered/Not Resolved]
  - Visual impairment [Recovered/Resolved]
  - Pain [Unknown]
  - Insomnia [Unknown]
  - Product use in unapproved indication [Unknown]
  - Intentional product misuse [Unknown]

NARRATIVE: CASE EVENT DATE: 20180801
